FAERS Safety Report 13622417 (Version 1)
Quarter: 2017Q2

REPORT INFORMATION
  Report Type: Spontaneous
  Country: US (occurrence: US)
  Receive Date: 20170607
  Receipt Date: 20170607
  Transmission Date: 20170830
  Serious: No
  Sender: FDA-Public Use
  Company Number: US-ROCHE-1811062

PATIENT
  Sex: Male
  Weight: 61.29 kg

DRUGS (3)
  1. XELODA [Suspect]
     Active Substance: CAPECITABINE
     Indication: COLON CANCER
     Dosage: THREE PILLS TWICE A DAY
     Route: 065
  2. XELODA [Suspect]
     Active Substance: CAPECITABINE
     Indication: GASTRIC CANCER
  3. XELODA [Suspect]
     Active Substance: CAPECITABINE
     Indication: BLADDER CANCER

REACTIONS (8)
  - Hypoaesthesia [Recovering/Resolving]
  - Memory impairment [Unknown]
  - Decreased appetite [Not Recovered/Not Resolved]
  - Hypoaesthesia [Unknown]
  - Alopecia [Unknown]
  - Peripheral coldness [Unknown]
  - Weight decreased [Unknown]
  - Hyposmia [Unknown]
